FAERS Safety Report 6154709-2 (Version None)
Quarter: 2009Q2

REPORT INFORMATION
  Report Type: 
  Country: None (occurrence: None)
  Receive Date: 20090414
  Receipt Date: 20090406
  Transmission Date: 20091009
  Serious: Yes (Hospitalization)
  Sender: FDA-Public Use
  Company Number: A0778482A

PATIENT
  Age: 40 Year
  Sex: Female

DRUGS (1)
  1. BUPROPION HCL [Suspect]
     Indication: MAJOR DEPRESSION
     Route: 065

REACTIONS (10)
  - CHEST DISCOMFORT [None]
  - DEPRESSIVE SYMPTOM [None]
  - DRUG INEFFECTIVE [None]
  - DYSPNOEA [None]
  - FATIGUE [None]
  - FEELING OF DESPAIR [None]
  - HEADACHE [None]
  - INSOMNIA [None]
  - MALAISE [None]
  - SUICIDAL IDEATION [None]
